FAERS Safety Report 6199625-5 (Version None)
Quarter: 2009Q2

REPORT INFORMATION
  Report Type: 
  Country: None (occurrence: None)
  Receive Date: 20090522
  Receipt Date: 20080729
  Transmission Date: 20091009
  Serious: No
  Sender: FDA-Public Use
  Company Number: A0740292A

PATIENT
  Age: 64 Year
  Sex: Male

DRUGS (10)
  1. BACTROBAN [Suspect]
     Route: 045
     Dates: start: 20080729, end: 20080729
  2. NORVIR [Concomitant]
  3. REYATAZ [Concomitant]
  4. TRUVADA [Concomitant]
  5. FLOMAX [Concomitant]
  6. PROSCAR [Concomitant]
  7. CASODEX [Concomitant]
  8. ZOLADEX [Concomitant]
  9. NORVASC [Concomitant]
  10. ACYCLOVIR [Concomitant]

REACTIONS (1)
  - DYSPNOEA [None]
